FAERS Safety Report 8926899 (Version 3)
Quarter: 2013Q1

REPORT INFORMATION
  Report Type: Spontaneous
  Country: US (occurrence: US)
  Receive Date: 20121127
  Receipt Date: 20130225
  Transmission Date: 20140127
  Serious: Yes (Death, Hospitalization, Other)
  Sender: FDA-Public Use
  Company Number: US-ELI_LILLY_AND_COMPANY-US201211004838

PATIENT
  Age: 91 Year
  Sex: Male
  Weight: 70.3 kg

DRUGS (1)
  1. ZYPREXA [Suspect]
     Indication: AGITATION
     Dosage: 2.5 MG, BID
     Route: 048
     Dates: start: 201206, end: 20121106

REACTIONS (5)
  - Dementia Alzheimer^s type [Fatal]
  - Duodenal ulcer haemorrhage [Recovered/Resolved]
  - Renal failure [Unknown]
  - Amnesia [Unknown]
  - Off label use [Recovered/Resolved]
